FAERS Safety Report 11026241 (Version 2)
Quarter: 2015Q2

REPORT INFORMATION
  Report Type: Spontaneous
  Country: IT (occurrence: IT)
  Receive Date: 20150414
  Receipt Date: 20150512
  Transmission Date: 20150821
  Serious: Yes (Other)
  Sender: FDA-Public Use
  Company Number: IT-TEVA-553994ACC

PATIENT
  Age: 67 Year
  Sex: Male
  Weight: 58 kg

DRUGS (3)
  1. GEMZAR [Suspect]
     Active Substance: GEMCITABINE HYDROCHLORIDE
     Indication: LUNG NEOPLASM MALIGNANT
     Dosage: 1200 MG/M2 DAILY; 1200 MG/M2 CYCLICAL, POWDER FOR SOLUTION FOR INFUSION
     Route: 041
  2. CARBOPLATINO TEVA - FLACONE IV 45 ML 10 MG/ML - TEVA PHARMA B.V. [Suspect]
     Active Substance: CARBOPLATIN
     Indication: LUNG NEOPLASM MALIGNANT
     Dosage: 300 MG/M2 DAILY; 300 MG/M2 CYCLICAL
     Route: 041
  3. CONCOR - 10 MG COMPRESSE [Concomitant]
     Indication: HYPERTENSION
     Dosage: 1 DOSAGE FORMS DAILY;
     Route: 048

REACTIONS (6)
  - Weight decreased [Unknown]
  - Flank pain [Not Recovered/Not Resolved]
  - Blood pressure decreased [Unknown]
  - Syncope [Not Recovered/Not Resolved]
  - Vertigo [Not Recovered/Not Resolved]
  - Orthostatic hypotension [Unknown]

NARRATIVE: CASE EVENT DATE: 20150106
